FAERS Safety Report 11987744 (Version 1)
Quarter: 2016Q1

REPORT INFORMATION
  Report Type: Spontaneous
  Country: US (occurrence: US)
  Receive Date: 20160202
  Receipt Date: 20160202
  Transmission Date: 20160526
  Serious: No
  Sender: FDA-Public Use
  Company Number: US-JNJFOC-20141019456

PATIENT
  Age: 72 Year
  Sex: Female

DRUGS (14)
  1. IMBRUVICA [Suspect]
     Active Substance: IBRUTINIB
     Indication: B-CELL SMALL LYMPHOCYTIC LYMPHOMA
     Route: 048
     Dates: start: 201508
  2. IMBRUVICA [Suspect]
     Active Substance: IBRUTINIB
     Indication: CHRONIC LYMPHOCYTIC LEUKAEMIA
     Route: 048
     Dates: start: 20141015, end: 2015
  3. MAGNESIUM [Concomitant]
     Active Substance: MAGNESIUM
  4. IBUPROFEN. [Concomitant]
     Active Substance: IBUPROFEN
     Indication: ARTHRITIS
     Dates: start: 20141123, end: 20141123
  5. PYRIDIUM [Concomitant]
     Active Substance: PHENAZOPYRIDINE
     Indication: BLADDER SPASM
     Dosage: UNKNOWN
     Route: 048
     Dates: start: 2014
  6. CINNAMON. [Concomitant]
     Active Substance: CINNAMON
  7. LACTOBACILLUS [Concomitant]
     Active Substance: LACTOBACILLUS ACIDOPHILUS
  8. VITAMIN D3 [Concomitant]
     Active Substance: CHOLECALCIFEROL
  9. TRAMADOL. [Concomitant]
     Active Substance: TRAMADOL
  10. IMBRUVICA [Suspect]
     Active Substance: IBRUTINIB
     Indication: CHRONIC LYMPHOCYTIC LEUKAEMIA
     Route: 048
     Dates: start: 201508
  11. PROBIOTICS [Concomitant]
     Active Substance: PROBIOTICS NOS
  12. IMBRUVICA [Suspect]
     Active Substance: IBRUTINIB
     Indication: B-CELL SMALL LYMPHOCYTIC LYMPHOMA
     Route: 048
     Dates: start: 20141015, end: 2015
  13. ALLOPURINOL. [Concomitant]
     Active Substance: ALLOPURINOL
     Indication: BLOOD URIC ACID INCREASED
     Route: 048
  14. PROCHLORPERAZINE MALEATE. [Concomitant]
     Active Substance: PROCHLORPERAZINE MALEATE
     Indication: NAUSEA
     Route: 048

REACTIONS (27)
  - Dry eye [Not Recovered/Not Resolved]
  - Feeling cold [Not Recovered/Not Resolved]
  - Rhinorrhoea [Recovered/Resolved]
  - Fatigue [Not Recovered/Not Resolved]
  - Chills [Recovered/Resolved]
  - Skin discolouration [Not Recovered/Not Resolved]
  - Contusion [Recovering/Resolving]
  - Dehydration [Unknown]
  - Arthritis [Not Recovered/Not Resolved]
  - Asthenia [Unknown]
  - Pyrexia [Recovered/Resolved]
  - Dry skin [Not Recovered/Not Resolved]
  - Mass [Recovered/Resolved]
  - Blood pressure diastolic increased [Unknown]
  - Pain in extremity [Recovered/Resolved]
  - Dysphonia [Recovering/Resolving]
  - Swelling [Recovered/Resolved]
  - Bone pain [Recovered/Resolved]
  - Diarrhoea [Recovered/Resolved]
  - Thirst [Not Recovered/Not Resolved]
  - Apathy [Unknown]
  - Headache [Recovered/Resolved]
  - Abdominal discomfort [Recovered/Resolved]
  - Dry mouth [Not Recovered/Not Resolved]
  - Gastrooesophageal reflux disease [Recovering/Resolving]
  - Lip swelling [Recovered/Resolved]
  - Vomiting [Recovered/Resolved]

NARRATIVE: CASE EVENT DATE: 201410
